FAERS Safety Report 15280589 (Version 2)
Quarter: 2018Q3

REPORT INFORMATION
  Report Type: Spontaneous
  Country: US (occurrence: US)
  Receive Date: 20180815
  Receipt Date: 20180902
  Transmission Date: 20181010
  Serious: Yes (Hospitalization)
  Sender: FDA-Public Use
  Company Number: US-BEH-2018093784

PATIENT
  Age: 55 Year
  Sex: Female

DRUGS (2)
  1. HIZENTRA [Suspect]
     Active Substance: HUMAN IMMUNOGLOBULIN G
     Dosage: 16 G, DAILY FOR TWO DAYS EVERY WEEK
     Route: 058
     Dates: start: 20160201
  2. HIZENTRA [Suspect]
     Active Substance: HUMAN IMMUNOGLOBULIN G
     Indication: CHRONIC INFLAMMATORY DEMYELINATING POLYRADICULONEUROPATHY
     Dosage: 16 G, DAILY FOR TWO DAYS EVERY WEEK
     Route: 058
     Dates: start: 20170725

REACTIONS (7)
  - Diplopia [Unknown]
  - Incoherent [Unknown]
  - Infusion site swelling [Unknown]
  - Adrenal insufficiency [Unknown]
  - Hypotension [Unknown]
  - Dysphagia [Unknown]
  - Muscular weakness [Unknown]

NARRATIVE: CASE EVENT DATE: 20180817
